FAERS Safety Report 20005408 (Version 3)
Quarter: 2022Q4

REPORT INFORMATION
  Report Type: Report from Study
  Country: CA (occurrence: CA)
  Receive Date: 20211028
  Receipt Date: 20221124
  Transmission Date: 20230112
  Serious: Yes (Other)
  Sender: FDA-Public Use
  Company Number: CA-JNJFOC-20211050003

PATIENT
  Age: 12 Year
  Sex: Male
  Weight: 81 kg

DRUGS (3)
  1. REMICADE [Suspect]
     Active Substance: INFLIXIMAB
     Indication: Crohn^s disease
     Dosage: DOSE INCREASED
     Route: 041
     Dates: start: 20210519
  2. REMICADE [Suspect]
     Active Substance: INFLIXIMAB
     Route: 041
  3. IRON [Suspect]
     Active Substance: IRON
     Indication: Anaemia
     Route: 065

REACTIONS (5)
  - Choking [Recovering/Resolving]
  - Autism spectrum disorder [Recovering/Resolving]
  - Oesophagitis [Unknown]
  - Anaemia [Not Recovered/Not Resolved]
  - Diarrhoea [Unknown]

NARRATIVE: CASE EVENT DATE: 20210101
